FAERS Safety Report 18146236 (Version 2)
Quarter: 2020Q3

REPORT INFORMATION
  Report Type: Spontaneous
  Country: US (occurrence: US)
  Receive Date: 20200813
  Receipt Date: 20200820
  Transmission Date: 20201103
  Serious: Yes (Other)
  Sender: FDA-Public Use
  Company Number: US-BEH-2020121282

PATIENT
  Sex: Female

DRUGS (7)
  1. HIZENTRA [Suspect]
     Active Substance: HUMAN IMMUNOGLOBULIN G
     Indication: IMMUNISATION
     Dosage: 10 GRAM, QW, DIVIDED OVER 2 SITES
     Route: 058
  2. FLUDROCORTISONE ACETATE. [Concomitant]
     Active Substance: FLUDROCORTISONE ACETATE
  3. LINZESS [Concomitant]
     Active Substance: LINACLOTIDE
  4. RESTASIS [Concomitant]
     Active Substance: CYCLOSPORINE
  5. MONTELUKAST SODIUM. [Concomitant]
     Active Substance: MONTELUKAST SODIUM
  6. TRAZODONE HYDROCHLORIDE. [Concomitant]
     Active Substance: TRAZODONE HYDROCHLORIDE
  7. PROPRANOLOL HCL [Concomitant]
     Active Substance: PROPRANOLOL HYDROCHLORIDE

REACTIONS (8)
  - Dizziness [Recovered/Resolved]
  - Postural orthostatic tachycardia syndrome [Unknown]
  - Ligament sprain [Recovered/Resolved]
  - Injection site pain [Recovered/Resolved]
  - Migraine [Recovered/Resolved]
  - No adverse event [Unknown]
  - Injection site erythema [Recovered/Resolved]
  - Product use in unapproved indication [Unknown]
